FAERS Safety Report 14290067 (Version 1)
Quarter: 2017Q4

REPORT INFORMATION
  Report Type: Spontaneous
  Country: US (occurrence: None)
  Receive Date: 20171203
  Receipt Date: 20171203
  Transmission Date: 20180321
  Serious: Yes (Disabling)
  Sender: FDA-Public Use
  Company Number: None

PATIENT
  Age: 55 Year
  Sex: Female
  Weight: 54.43 kg

DRUGS (2)
  1. ORENCIA [Suspect]
     Active Substance: ABATACEPT
     Indication: CONNECTIVE TISSUE DISORDER
     Dosage: ?          QUANTITY:5 INJECTION(S);?
     Route: 042
  2. ORENCIA [Suspect]
     Active Substance: ABATACEPT
     Indication: FIBROMYALGIA
     Dosage: ?          QUANTITY:5 INJECTION(S);?
     Route: 042

REACTIONS (12)
  - Paranoia [None]
  - Neck pain [None]
  - Gait disturbance [None]
  - Anxiety [None]
  - Adrenal insufficiency [None]
  - Electroconvulsive therapy [None]
  - Intervertebral disc protrusion [None]
  - Depression [None]
  - Impaired work ability [None]
  - Hip arthroplasty [None]
  - Pain in extremity [None]
  - Economic problem [None]

NARRATIVE: CASE EVENT DATE: 20110530
